FAERS Safety Report 8936079 (Version 1)
Quarter: 2012Q4

REPORT INFORMATION
  Report Type: Report from Study
  Country: GB (occurrence: GB)
  Receive Date: 20121130
  Receipt Date: 20121130
  Transmission Date: 20130627
  Serious: Yes (Other)
  Sender: FDA-Public Use
  Company Number: GB-PFIZER INC-2012290779

PATIENT
  Age: 61 Year
  Sex: Female
  Weight: 66.1 kg

DRUGS (7)
  1. AXITINIB [Suspect]
     Indication: SARCOMA
     Dosage: 5 mg, cyclic
     Dates: start: 20121111, end: 20121113
  2. PARACETAMOL [Concomitant]
     Indication: PAIN
     Dosage: 1 g, as needed
     Route: 048
  3. TRAMADOL [Concomitant]
     Indication: PAIN
     Dosage: 50 mg, 2x/day
     Route: 048
  4. OXYNORM [Concomitant]
     Indication: PAIN
     Dosage: 10 mg, as needed
     Route: 048
  5. DIAZEPAM [Concomitant]
     Indication: PAIN
     Dosage: 5 mg, 1x/day
     Route: 048
  6. LORATADINE [Concomitant]
     Dosage: 20 mg, 1x/day
     Route: 048
  7. MOVICOL [Concomitant]
     Indication: CONSTIPATION
     Dosage: 1 sachet as needed
     Route: 048

REACTIONS (1)
  - Atrial fibrillation [Recovered/Resolved]
